FAERS Safety Report 6773481-6 (Version None)
Quarter: 2010Q2

REPORT INFORMATION
  Report Type: 
  Country: None (occurrence: None)
  Receive Date: 20100616
  Receipt Date: 20100607
  Transmission Date: 20101027
  Serious: Yes (Other)
  Sender: FDA-Public Use
  Company Number: US-ABBOTT-10P-163-0649955-00

PATIENT
  Sex: Female
  Weight: 120.31 kg

DRUGS (23)
  1. HUMIRA [Suspect]
     Indication: RHEUMATOID ARTHRITIS
     Route: 058
     Dates: start: 20100401
  2. HUMIRA [Suspect]
     Route: 058
     Dates: end: 20090601
  3. HUMULOG LONG ACTING [Suspect]
     Indication: DIABETES MELLITUS
     Dates: end: 20080609
  4. LASIX [Suspect]
     Indication: DRUG USE FOR UNKNOWN INDICATION
     Dates: end: 20080601
  5. VITAMIN B-12 [Concomitant]
     Indication: ANAEMIA
     Route: 050
  6. LANTUS [Concomitant]
     Indication: DIABETES MELLITUS
  7. HUMULOG SHORT ACTING [Concomitant]
     Indication: DIABETES MELLITUS
  8. BENICAR [Concomitant]
     Indication: DRUG USE FOR UNKNOWN INDICATION
     Route: 048
  9. CLONIDINE [Concomitant]
     Indication: DRUG USE FOR UNKNOWN INDICATION
     Route: 048
  10. COREG [Concomitant]
     Indication: HYPERTENSION
     Route: 048
  11. COREG [Concomitant]
     Indication: CARDIAC DISORDER
  12. ASPIRIN [Concomitant]
     Indication: DRUG USE FOR UNKNOWN INDICATION
     Route: 048
  13. NIASPAN [Concomitant]
     Indication: DRUG USE FOR UNKNOWN INDICATION
     Route: 048
  14. FISH OIL [Concomitant]
     Indication: DRUG USE FOR UNKNOWN INDICATION
     Route: 048
  15. LEVOTHYROXINE SODIUM [Concomitant]
     Indication: HYPOTHYROIDISM
     Route: 048
  16. FOLIC ACID [Concomitant]
     Indication: DRUG USE FOR UNKNOWN INDICATION
     Route: 048
  17. ZOLOFT [Concomitant]
     Indication: DRUG USE FOR UNKNOWN INDICATION
     Route: 048
  18. XANAX [Concomitant]
     Indication: DRUG USE FOR UNKNOWN INDICATION
     Route: 048
  19. REQUIP [Concomitant]
     Indication: RESTLESS LEGS SYNDROME
     Route: 048
  20. ANTARA (MICRONIZED) [Concomitant]
     Indication: BLOOD TRIGLYCERIDES INCREASED
     Route: 048
  21. CRESTOR [Concomitant]
     Indication: DRUG USE FOR UNKNOWN INDICATION
     Route: 048
  22. METHOTREXATE [Concomitant]
     Indication: RHEUMATOID ARTHRITIS
     Route: 048
  23. VICODIN [Concomitant]
     Indication: PAIN
     Route: 048

REACTIONS (6)
  - ARTHROPATHY [None]
  - ASTHENIA [None]
  - BLOOD GLUCOSE DECREASED [None]
  - PAIN [None]
  - RED BLOOD CELL COUNT DECREASED [None]
  - RENAL FAILURE [None]
